FAERS Safety Report 19180723 (Version 1)
Quarter: 2021Q2

REPORT INFORMATION
  Report Type: Spontaneous
  Country: PT (occurrence: PT)
  Receive Date: 20210426
  Receipt Date: 20210426
  Transmission Date: 20210717
  Serious: Yes (Hospitalization, Other)
  Sender: FDA-Public Use
  Company Number: PT-MYLANLABS-2021M1023977

PATIENT
  Age: 60 Year
  Sex: Male

DRUGS (1)
  1. CLOZAPINE. [Suspect]
     Active Substance: CLOZAPINE
     Indication: DEPRESSION
     Dosage: UNK

REACTIONS (10)
  - Rash erythematous [Recovered/Resolved]
  - Nephrotic syndrome [Unknown]
  - Blood creatinine increased [Unknown]
  - Vasculitis [Unknown]
  - Antineutrophil cytoplasmic antibody positive [Unknown]
  - Renal tubular necrosis [Unknown]
  - Urine output decreased [Unknown]
  - Proteinuria [Unknown]
  - Haematuria [Unknown]
  - Focal segmental glomerulosclerosis [Unknown]
